FAERS Safety Report 12894781 (Version 2)
Quarter: 2016Q4

REPORT INFORMATION
  Report Type: Spontaneous
  Country: US (occurrence: US)
  Receive Date: 20161028
  Receipt Date: 20161212
  Transmission Date: 20170207
  Serious: Yes (Hospitalization, Other)
  Sender: FDA-Public Use
  Company Number: US-ELI_LILLY_AND_COMPANY-US201607009687

PATIENT
  Age: 57 Year
  Sex: Female

DRUGS (4)
  1. TRAMADOL. [Concomitant]
     Active Substance: TRAMADOL
     Dosage: 100 MG, BID
     Route: 065
  2. CYCLOBENZAPRINE [Concomitant]
     Active Substance: CYCLOBENZAPRINE
     Dosage: 10 MG, TID
     Route: 065
  3. CYMBALTA [Suspect]
     Active Substance: DULOXETINE HYDROCHLORIDE
     Indication: PRODUCT USED FOR UNKNOWN INDICATION
     Dosage: UNK, UNKNOWN
     Route: 065
     Dates: end: 201410
  4. NICOTINE. [Concomitant]
     Active Substance: NICOTINE
     Dosage: 21 MG, QD
     Route: 065

REACTIONS (14)
  - Depression [Unknown]
  - Suicidal ideation [Unknown]
  - Fatigue [Unknown]
  - Irritability [Unknown]
  - Affect lability [Unknown]
  - Anxiety [Unknown]
  - Bipolar disorder [Unknown]
  - Agitation [Unknown]
  - Drug withdrawal syndrome [Unknown]
  - Confusional state [Unknown]
  - Lethargy [Unknown]
  - Affective disorder [Unknown]
  - Dysphoria [Unknown]
  - Insomnia [Unknown]

NARRATIVE: CASE EVENT DATE: 201411
